FAERS Safety Report 6984943-0 (Version None)
Quarter: 2010Q3

REPORT INFORMATION
  Report Type: 
  Country: None (occurrence: None)
  Receive Date: 20100915
  Receipt Date: 20100903
  Transmission Date: 20110219
  Serious: Yes (Other)
  Sender: FDA-Public Use
  Company Number: US-ELI_LILLY_AND_COMPANY-US201009001353

PATIENT
  Sex: Female

DRUGS (3)
  1. CYMBALTA [Suspect]
     Dates: start: 20100101
  2. GEODON [Concomitant]
     Indication: BIPOLAR DISORDER
     Dosage: 20 MG, 2/D
  3. REMERON [Concomitant]

REACTIONS (4)
  - COMA [None]
  - FATIGUE [None]
  - MUSCLE TIGHTNESS [None]
  - SEDATION [None]
